FAERS Safety Report 8507184-4 (Version None)
Quarter: 2012Q3

REPORT INFORMATION
  Report Type: 
  Country: None (occurrence: None)
  Receive Date: 20120712
  Receipt Date: 20120706
  Transmission Date: 20120928
  Serious: Yes (Other)
  Sender: FDA-Public Use
  Company Number: PHHY2012BR059003

PATIENT
  Sex: Female

DRUGS (3)
  1. BUFFERIN [Suspect]
     Indication: HYPOTENSION
     Dosage: 1 DF, DAILY DOSE
     Route: 048
  2. BUFFERIN [Suspect]
     Indication: CARDIAC DISORDER
  3. LYRICA [Concomitant]
     Indication: PAIN
     Dosage: 3 DF, PER MONTH

REACTIONS (3)
  - INCORRECT DRUG ADMINISTRATION DURATION [None]
  - CHONDROPATHY [None]
  - ARTHRALGIA [None]
